FAERS Safety Report 9496779 (Version 3)
Quarter: 2013Q4

REPORT INFORMATION
  Report Type: Spontaneous
  Country: IE (occurrence: IE)
  Receive Date: 20130904
  Receipt Date: 20131009
  Transmission Date: 20140711
  Serious: Yes (Other)
  Sender: FDA-Public Use
  Company Number: IE-PFIZER INC-2013253757

PATIENT
  Age: 75 Year
  Sex: Male

DRUGS (2)
  1. CORDARONE [Suspect]
     Indication: HEART RATE INCREASED
     Dosage: 100 MG, UNK
     Route: 048
     Dates: end: 201203
  2. CORDARONE [Suspect]
     Dosage: 200 MG, 2X/DAY
     Route: 048
     Dates: start: 201203

REACTIONS (10)
  - Pulmonary oedema [Not Recovered/Not Resolved]
  - Dyspnoea [Not Recovered/Not Resolved]
  - Cough [Not Recovered/Not Resolved]
  - Nasopharyngitis [Not Recovered/Not Resolved]
  - Infection [Not Recovered/Not Resolved]
  - Eye pain [Not Recovered/Not Resolved]
  - Chest discomfort [Not Recovered/Not Resolved]
  - Pulmonary toxicity [Not Recovered/Not Resolved]
  - Cardiac disorder [Not Recovered/Not Resolved]
  - Lung disorder [Not Recovered/Not Resolved]
